FAERS Safety Report 21204790 (Version 2)
Quarter: 2022Q3

REPORT INFORMATION
  Report Type: Spontaneous
  Country: MY (occurrence: MY)
  Receive Date: 20220812
  Receipt Date: 20220817
  Transmission Date: 20221027
  Serious: Yes (Hospitalization, Other)
  Sender: FDA-Public Use
  Company Number: MY-ALLERGAN-2226162US

PATIENT
  Sex: Male

DRUGS (3)
  1. BOTOX [Suspect]
     Active Substance: ONABOTULINUMTOXINA
     Indication: Penile modelling procedure
     Dosage: UNK, SINGLE
  2. ERYTHROMYCIN [Suspect]
     Active Substance: ERYTHROMYCIN
     Indication: Prophylaxis
     Dosage: UNK
  3. ERYTHROMYCIN [Suspect]
     Active Substance: ERYTHROMYCIN
     Indication: Asthenia

REACTIONS (10)
  - Septic shock [Recovered/Resolved]
  - Acute respiratory distress syndrome [Recovered/Resolved]
  - Pulmonary embolism [Recovered/Resolved]
  - Leukocytosis [Recovered/Resolved]
  - Pleural effusion [Recovered/Resolved]
  - Respiratory failure [Recovered/Resolved]
  - Penile swelling [Recovered/Resolved]
  - Off label use [Unknown]
  - Injection site haemorrhage [Recovered/Resolved]
  - Suspected product quality issue [Unknown]
